FAERS Safety Report 5637674-3 (Version None)
Quarter: 2008Q1

REPORT INFORMATION
  Report Type: 
  Country: None (occurrence: None)
  Receive Date: 20080225
  Receipt Date: 20080221
  Transmission Date: 20080703
  Serious: Yes (Hospitalization)
  Sender: FDA-Public Use
  Company Number: GB-MERCK-0802GBR00087

PATIENT
  Age: 94 Year
  Sex: Female

DRUGS (6)
  1. MODURETIC 5-50 [Suspect]
     Indication: HYPERTENSION
     Route: 048
     Dates: end: 20080207
  2. FELODIPINE [Concomitant]
     Indication: HYPERTENSION
     Route: 048
  3. LATANOPROST [Concomitant]
     Indication: GLAUCOMA
     Route: 047
  4. LEVOBUNOLOL HYDROCHLORIDE [Concomitant]
     Indication: GLAUCOMA
     Route: 047
  5. POLYETHYLENE GLYCOL 3350 AND POTASSIUM CHLORIDE AND SODIUM BICARBONATE [Concomitant]
     Route: 048
  6. ACETAMINOPHEN [Concomitant]
     Route: 048

REACTIONS (1)
  - BLOOD SODIUM DECREASED [None]
